FAERS Safety Report 13069302 (Version 1)
Quarter: 2016Q4

REPORT INFORMATION
  Report Type: Spontaneous
  Country: FR (occurrence: FR)
  Receive Date: 20161228
  Receipt Date: 20161228
  Transmission Date: 20170207
  Serious: Yes (Hospitalization, Other)
  Sender: FDA-Public Use
  Company Number: FR-MYLANLABS-2016M1057095

PATIENT

DRUGS (12)
  1. KARDEGIC [Concomitant]
     Active Substance: ASPIRIN LYSINE
     Indication: PROPHYLAXIS
     Dosage: 75 MG, QD
     Route: 048
  2. GABAPENTINE [Concomitant]
     Active Substance: GABAPENTIN
     Indication: PRODUCT USED FOR UNKNOWN INDICATION
     Dosage: 2 DF, TID
     Route: 048
  3. CANDESARTAN [Suspect]
     Active Substance: CANDESARTAN
     Indication: HYPERTENSION
     Dosage: 8 MG, QD
     Route: 048
     Dates: end: 20160712
  4. URBANYL [Concomitant]
     Active Substance: CLOBAZAM
     Indication: PRODUCT USED FOR UNKNOWN INDICATION
     Dosage: 2 DF, QD
     Route: 048
  5. AMLOR [Suspect]
     Active Substance: AMLODIPINE BESYLATE
     Indication: HYPERTENSION
     Dosage: 1 DF, QD
     Route: 048
  6. ALDACTAZINE [Suspect]
     Active Substance: ALTHIAZIDE\SPIRONOLACTONE
     Indication: HYPERTENSION
     Dosage: 25 MG, QD
     Route: 048
     Dates: end: 20160712
  7. TRINITRINE MYLAN 5 MG/24 HEURES, DISPOSITIF TRANSDERMIQUE [Suspect]
     Active Substance: NITROGLYCERIN
     Indication: PRODUCT USED FOR UNKNOWN INDICATION
     Dosage: 5 MG, QD
     Route: 003
  8. DANTROLENE SODIUM. [Concomitant]
     Active Substance: DANTROLENE SODIUM
     Indication: PRODUCT USED FOR UNKNOWN INDICATION
     Dosage: 1 DF, BID
     Route: 048
  9. ATORVASTATINE                      /01326101/ [Concomitant]
     Active Substance: ATORVASTATIN
     Indication: PRODUCT USED FOR UNKNOWN INDICATION
     Dosage: 10 MG, QD
     Route: 048
  10. BRILIQUE [Concomitant]
     Active Substance: TICAGRELOR
     Indication: PRODUCT USED FOR UNKNOWN INDICATION
     Dosage: 90 MG, BID
     Route: 048
  11. LASILIX                            /00032601/ [Suspect]
     Active Substance: FUROSEMIDE
     Indication: PULMONARY OEDEMA
     Dosage: 2DF IN THE MORNING AND 1DF AT
     Route: 048
  12. RABEPRAZOLE [Concomitant]
     Active Substance: RABEPRAZOLE
     Indication: PRODUCT USED FOR UNKNOWN INDICATION
     Dosage: 10 MG, QD
     Route: 048

REACTIONS (8)
  - Hypotension [Recovered/Resolved]
  - Acute kidney injury [Unknown]
  - Loss of consciousness [Recovered/Resolved]
  - Dehydration [Unknown]
  - Heart rate decreased [Unknown]
  - Fall [Unknown]
  - Pulmonary oedema [Unknown]
  - Head injury [Unknown]

NARRATIVE: CASE EVENT DATE: 20160705
